FAERS Safety Report 25724823 (Version 2)
Quarter: 2025Q3

REPORT INFORMATION
  Report Type: Spontaneous
  Country: CN (occurrence: CN)
  Receive Date: 20250826
  Receipt Date: 20250826
  Transmission Date: 20251020
  Serious: Yes (Hospitalization, Other)
  Sender: Kenvue
  Company Number: CN-KENVUE-20250807968

PATIENT

DRUGS (4)
  1. CHILDRENS MOTRIN [Suspect]
     Active Substance: IBUPROFEN
     Indication: Antipyresis
     Route: 048
     Dates: start: 20250626
  2. LORATADINE [Suspect]
     Active Substance: LORATADINE
     Indication: Rash
     Route: 065
     Dates: start: 20250626
  3. Gan kang [Concomitant]
     Indication: Pyrexia
     Route: 065
     Dates: start: 20250618
  4. Gan kang [Concomitant]
     Indication: Oropharyngeal pain

REACTIONS (3)
  - Herpes virus infection [Recovering/Resolving]
  - Rash pustular [Recovered/Resolved]
  - Erythema multiforme [Recovering/Resolving]

NARRATIVE: CASE EVENT DATE: 20250601
